FAERS Safety Report 25741098 (Version 1)
Quarter: 2025Q3

REPORT INFORMATION
  Report Type: Spontaneous
  Country: US (occurrence: US)
  Receive Date: 20250829
  Receipt Date: 20250829
  Transmission Date: 20251020
  Serious: No
  Sender: BAYER HEALTHCARE LLC
  Company Number: US-BAYER-2025A114257

PATIENT
  Age: 96 Year
  Sex: Male

DRUGS (1)
  1. MIRALAX [Suspect]
     Active Substance: POLYETHYLENE GLYCOL 3350
     Indication: Gastrointestinal disorder
     Route: 048
     Dates: start: 20250822, end: 20250826

REACTIONS (2)
  - Diarrhoea [Not Recovered/Not Resolved]
  - Therapeutic product effect increased [Not Recovered/Not Resolved]

NARRATIVE: CASE EVENT DATE: 20250822
